FAERS Safety Report 21662097 (Version 2)
Quarter: 2023Q1

REPORT INFORMATION
  Report Type: Spontaneous
  Country: US (occurrence: US)
  Receive Date: 20221130
  Receipt Date: 20230202
  Transmission Date: 20230417
  Serious: No
  Sender: FDA-Public Use
  Company Number: US-SA-SAC20221128001311

PATIENT
  Age: 62 Year
  Sex: Female

DRUGS (1)
  1. AUBAGIO [Suspect]
     Active Substance: TERIFLUNOMIDE
     Indication: Multiple sclerosis
     Dosage: 14 MG, QD
     Route: 048
     Dates: start: 20190719

REACTIONS (5)
  - Mobility decreased [Unknown]
  - Fall [Unknown]
  - Balance disorder [Unknown]
  - COVID-19 [Unknown]
  - Amnesia [Unknown]

NARRATIVE: CASE EVENT DATE: 20230102
